FAERS Safety Report 9143427 (Version 1)
Quarter: 2013Q1

REPORT INFORMATION
  Report Type: Spontaneous
  Country: US (occurrence: US)
  Receive Date: 20130306
  Receipt Date: 20130306
  Transmission Date: 20140127
  Serious: No
  Sender: FDA-Public Use
  Company Number: US-ENDO PHARMACEUTICALS INC.-OPER20120238

PATIENT
  Sex: Female
  Weight: 83.99 kg

DRUGS (2)
  1. OPANA ER [Suspect]
     Indication: CANCER PAIN
     Route: 048
     Dates: start: 2011, end: 201202
  2. OPANA ER [Suspect]
     Indication: BACK PAIN

REACTIONS (6)
  - Panic attack [Not Recovered/Not Resolved]
  - Insomnia [Not Recovered/Not Resolved]
  - Hot flush [Not Recovered/Not Resolved]
  - Dizziness [Not Recovered/Not Resolved]
  - Anxiety [Not Recovered/Not Resolved]
  - Vomiting [Not Recovered/Not Resolved]
